FAERS Safety Report 5511180-9 (Version None)
Quarter: 2007Q4

REPORT INFORMATION
  Report Type: 
  Country: None (occurrence: None)
  Receive Date: 20071109
  Receipt Date: 20071029
  Transmission Date: 20080405
  Serious: Yes (Other)
  Sender: FDA-Public Use
  Company Number: US-ELI_LILLY_AND_COMPANY-US200710007076

PATIENT
  Sex: Female

DRUGS (1)
  1. GEMZAR [Suspect]
     Indication: BREAST CANCER

REACTIONS (2)
  - HAEMOLYTIC URAEMIC SYNDROME [None]
  - THROMBOTIC THROMBOCYTOPENIC PURPURA [None]
